FAERS Safety Report 25138789 (Version 1)
Quarter: 2025Q1

REPORT INFORMATION
  Report Type: Spontaneous
  Country: NL (occurrence: NL)
  Receive Date: 20250331
  Receipt Date: 20250331
  Transmission Date: 20250409
  Serious: Yes (Other)
  Sender: ROCHE
  Company Number: None

PATIENT
  Age: 21 Year
  Sex: Male
  Weight: 145 kg

DRUGS (2)
  1. ENTRECTINIB [Suspect]
     Active Substance: ENTRECTINIB
     Indication: Glioma
     Route: 048
     Dates: start: 20240408
  2. VALPROIC ACID GRANULES MGA 750MG (ACID+NA-SALT) / DEPAKINE CHRONOSPHER [Concomitant]
     Route: 048

REACTIONS (1)
  - Rhabdomyolysis [Recovered/Resolved]
